FAERS Safety Report 25956659 (Version 1)
Quarter: 2025Q4

REPORT INFORMATION
  Report Type: Spontaneous
  Country: AU (occurrence: AU)
  Receive Date: 20251024
  Receipt Date: 20251024
  Transmission Date: 20260117
  Serious: Yes (Hospitalization, Other)
  Sender: CURIUM PHARMACEUTICALS
  Company Number: AU-CURIUM-2025000672

PATIENT
  Age: 24 Year
  Sex: Female
  Weight: 100 kg

DRUGS (1)
  1. GALLIUM CITRATE GA-67 [Suspect]
     Active Substance: GALLIUM CITRATE GA-67
     Indication: Intestinal transit time
     Dosage: IN 200 ML OF WATER
     Route: 048
     Dates: start: 20250929, end: 20250929

REACTIONS (4)
  - Anaphylactic reaction [Recovered/Resolved]
  - Device related thrombosis [Unknown]
  - Off label use [Recovered/Resolved]
  - Off label use [Recovered/Resolved]

NARRATIVE: CASE EVENT DATE: 20250929
